FAERS Safety Report 23730929 (Version 1)
Quarter: 2024Q2

REPORT INFORMATION
  Report Type: Report from Study
  Country: MY (occurrence: None)
  Receive Date: 20240411
  Receipt Date: 20240411
  Transmission Date: 20240715
  Serious: Yes (Death)
  Sender: FDA-Public Use
  Company Number: 2020SF58801

PATIENT
  Age: 20195 Day
  Sex: Female

DRUGS (1)
  1. IRESSA [Suspect]
     Active Substance: GEFITINIB
     Dosage: 250.0MG UNKNOWN
     Route: 048
     Dates: start: 20191203

REACTIONS (1)
  - Illness [Fatal]
